FAERS Safety Report 9164101 (Version 1)
Quarter: 2013Q1

REPORT INFORMATION
  Report Type: Report from Study
  Country: GB (occurrence: GB)
  Receive Date: 20130315
  Receipt Date: 20130315
  Transmission Date: 20140127
  Serious: Yes (Death)
  Sender: FDA-Public Use
  Company Number: GB-AMGEN-GBRCT2013016629

PATIENT
  Age: 81 Year
  Sex: Female

DRUGS (2)
  1. ETANERCEPT [Suspect]
     Indication: RHEUMATOID ARTHRITIS
     Dosage: 25 MG, 2 TIMES/WK
     Dates: start: 20100401
  2. METHOTREXATE [Concomitant]
     Dosage: UNK
     Dates: start: 20100415

REACTIONS (2)
  - Intervertebral discitis [Fatal]
  - Bronchopneumonia [Fatal]
